FAERS Safety Report 15933486 (Version 2)
Quarter: 2019Q1

REPORT INFORMATION
  Report Type: Report from Study
  Country: US (occurrence: US)
  Receive Date: 20190207
  Receipt Date: 20190301
  Transmission Date: 20190417
  Serious: Yes (Other)
  Sender: FDA-Public Use
  Company Number: US-REGENERON PHARMACEUTICALS, INC.-2019-14966

PATIENT

DRUGS (1)
  1. EYLEA [Suspect]
     Active Substance: AFLIBERCEPT
     Indication: NEOVASCULAR AGE-RELATED MACULAR DEGENERATION
     Dosage: UNK, EVERY 4-6 WEEKS
     Route: 031
     Dates: start: 20141029, end: 201807

REACTIONS (15)
  - Oral disorder [Not Recovered/Not Resolved]
  - Fall [Unknown]
  - Eye contusion [Unknown]
  - Disease progression [Unknown]
  - Nasal polyps [Recovered/Resolved]
  - Dysphagia [Unknown]
  - Confusional state [Unknown]
  - Speech disorder [Unknown]
  - Squamous cell carcinoma [Unknown]
  - Rib fracture [Unknown]
  - General physical health deterioration [Unknown]
  - Dizziness [Unknown]
  - Overweight [Unknown]
  - Memory impairment [Unknown]
  - Wrist fracture [Unknown]

NARRATIVE: CASE EVENT DATE: 201607
